FAERS Safety Report 17258036 (Version 3)
Quarter: 2021Q3

REPORT INFORMATION
  Report Type: Spontaneous
  Country: US (occurrence: US)
  Receive Date: 20200110
  Receipt Date: 20210709
  Transmission Date: 20211014
  Serious: Yes (Hospitalization, Other)
  Sender: FDA-Public Use
  Company Number: US-PFIZER INC-2020011855

PATIENT
  Age: 75 Year
  Sex: Male

DRUGS (3)
  1. INLYTA [Suspect]
     Active Substance: AXITINIB
     Indication: RENAL CANCER
     Dosage: 6 MG, 2X/DAY (ONE 5MG TABLET AND ONE 1MG TABLET)
     Route: 048
     Dates: start: 20190726, end: 20200102
  2. INLYTA [Suspect]
     Active Substance: AXITINIB
     Dosage: 5 MG, 2X/DAY (BID?TWICE A DAY)
     Dates: start: 20210616
  3. INLYTA [Suspect]
     Active Substance: AXITINIB
     Dosage: 5MG PO AM AND 10MG PO PM
     Route: 048
     Dates: start: 20210615

REACTIONS (12)
  - Hallucination [Unknown]
  - Bladder dysfunction [Unknown]
  - Vision blurred [Unknown]
  - Pulmonary oedema [Recovering/Resolving]
  - Cough [Unknown]
  - Dyspnoea [Recovering/Resolving]
  - Bradykinesia [Unknown]
  - Confusional state [Unknown]
  - Speech disorder [Unknown]
  - Asthenia [Unknown]
  - Reading disorder [Unknown]
  - Dysstasia [Unknown]

NARRATIVE: CASE EVENT DATE: 20200102
